FAERS Safety Report 4768656-1 (Version None)
Quarter: 2005Q3

REPORT INFORMATION
  Report Type: 
  Country: None (occurrence: None)
  Receive Date: 20050913
  Receipt Date: 20050830
  Transmission Date: 20060218
  Serious: Yes (Other)
  Sender: FDA-Public Use
  Company Number: 217314

PATIENT
  Age: 61 Year
  Sex: Male
  Weight: 68.5 kg

DRUGS (1)
  1. AVASTIN [Suspect]
     Indication: COLORECTAL CANCER METASTATIC
     Dosage: 5 MG/KG, Q2W, INTRAVENOUS
     Route: 042
     Dates: start: 20050124, end: 20050221

REACTIONS (5)
  - ANAEMIA [None]
  - BLOODY DISCHARGE [None]
  - ENTEROBACTER INFECTION [None]
  - FATIGUE [None]
  - RECTAL ABSCESS [None]
